FAERS Safety Report 18650652 (Version 3)
Quarter: 2021Q1

REPORT INFORMATION
  Report Type: Other
  Country: US (occurrence: US)
  Receive Date: 20201223
  Receipt Date: 20210101
  Transmission Date: 20210419
  Serious: Yes (Hospitalization)
  Sender: FDA-Public Use
  Company Number: US-ROCHE-2675683

PATIENT
  Age: 66 Year
  Sex: Male
  Weight: 109.41 kg

DRUGS (11)
  1. OCREVUS [Suspect]
     Active Substance: OCRELIZUMAB
     Indication: PRIMARY PROGRESSIVE MULTIPLE SCLEROSIS
     Route: 042
     Dates: start: 20190218
  2. METOPROLOL. [Concomitant]
     Active Substance: METOPROLOL
     Indication: HYPERTENSION
     Route: 048
  3. BENAZEPRIL [Concomitant]
     Active Substance: BENAZEPRIL HYDROCHLORIDE
     Indication: HYPERTENSION
     Dosage: AT NIGHT 25 BENAZEPRIL 12HZL
     Route: 048
  4. OCREVUS [Suspect]
     Active Substance: OCRELIZUMAB
     Route: 042
     Dates: start: 2017
  5. FLOMAX [Concomitant]
     Active Substance: TAMSULOSIN HYDROCHLORIDE
     Dosage: MORNING AND EVENING
     Route: 048
  6. METFORMIN [Concomitant]
     Active Substance: METFORMIN HYDROCHLORIDE
     Dosage: 2 TABLETS
     Route: 048
  7. LASIX [Concomitant]
     Active Substance: FUROSEMIDE
     Dosage: IN THE MORNING
     Route: 048
  8. OCREVUS [Suspect]
     Active Substance: OCRELIZUMAB
     Route: 042
     Dates: start: 20180312
  9. SIMVASTATIN. [Concomitant]
     Active Substance: SIMVASTATIN
     Indication: BLOOD CHOLESTEROL INCREASED
     Route: 048
  10. ALLOPURINOL. [Concomitant]
     Active Substance: ALLOPURINOL
     Indication: GOUT
     Route: 048
  11. METFORMIN [Concomitant]
     Active Substance: METFORMIN HYDROCHLORIDE
     Indication: GLUCOSE TOLERANCE IMPAIRED
     Dosage: IN THE MORNING
     Route: 048

REACTIONS (4)
  - Cough [Unknown]
  - Arthritis [Unknown]
  - Coronavirus infection [Recovered/Resolved]
  - Fall [Unknown]

NARRATIVE: CASE EVENT DATE: 2020
